FAERS Safety Report 20787127 (Version 8)
Quarter: 2022Q4

REPORT INFORMATION
  Report Type: Report from Study
  Country: AR (occurrence: AR)
  Receive Date: 20220505
  Receipt Date: 20221109
  Transmission Date: 20230113
  Serious: Yes (Other)
  Sender: FDA-Public Use
  Company Number: AR-NOVARTISPH-PHHY2018AR003999

PATIENT
  Sex: Female

DRUGS (4)
  1. COSENTYX [Suspect]
     Active Substance: SECUKINUMAB
     Indication: Psoriatic arthropathy
     Dosage: 300 MG
     Route: 065
     Dates: start: 20170118
  2. COSENTYX [Suspect]
     Active Substance: SECUKINUMAB
     Dosage: 300 MG, QMO
     Route: 058
     Dates: start: 20170228, end: 201710
  3. COSENTYX [Suspect]
     Active Substance: SECUKINUMAB
     Dosage: 300 MG
     Route: 065
     Dates: end: 20180614
  4. COSENTYX [Suspect]
     Active Substance: SECUKINUMAB
     Dosage: 300 MG, QMO
     Route: 058
     Dates: start: 20220614

REACTIONS (37)
  - Neoplasm malignant [Unknown]
  - Psoriasis [Unknown]
  - Pruritus [Unknown]
  - Skin haemorrhage [Unknown]
  - Scratch [Unknown]
  - Skin exfoliation [Unknown]
  - Memory impairment [Unknown]
  - COVID-19 [Recovered/Resolved]
  - Peripheral swelling [Unknown]
  - Fear [Unknown]
  - Liver disorder [Unknown]
  - Bone pain [Unknown]
  - Burning sensation [Not Recovered/Not Resolved]
  - Emotional distress [Unknown]
  - Finger deformity [Unknown]
  - Fall [Unknown]
  - Joint injury [Unknown]
  - Head injury [Unknown]
  - COVID-19 [Recovered/Resolved with Sequelae]
  - Ageusia [Unknown]
  - Colitis [Unknown]
  - Vomiting [Unknown]
  - Cough [Unknown]
  - Headache [Unknown]
  - Emotional disorder [Unknown]
  - Agitation [Unknown]
  - Fatigue [Unknown]
  - Depression [Unknown]
  - Panic attack [Unknown]
  - Asthenia [Unknown]
  - Anosmia [Unknown]
  - Malaise [Unknown]
  - Arthralgia [Unknown]
  - Pain in extremity [Unknown]
  - Breast calcifications [Unknown]
  - Hypovitaminosis [Unknown]
  - Drug ineffective [Recovering/Resolving]

NARRATIVE: CASE EVENT DATE: 20170101
